FAERS Safety Report 18322927 (Version 1)
Quarter: 2020Q3

REPORT INFORMATION
  Report Type: Spontaneous
  Country: US (occurrence: US)
  Receive Date: 20200929
  Receipt Date: 20200929
  Transmission Date: 20201103
  Serious: Yes (Other)
  Sender: FDA-Public Use
  Company Number: US-SUN PHARMACEUTICAL INDUSTRIES LTD-2020R1-262425

PATIENT
  Age: 80 Year
  Sex: Male

DRUGS (6)
  1. ACETAZOLAMIDE. [Suspect]
     Active Substance: ACETAZOLAMIDE
     Indication: GLAUCOMA
     Route: 048
  2. LATANOPROST. [Concomitant]
     Active Substance: LATANOPROST
     Indication: GLAUCOMA
     Dosage: ONE TIME PER DAY
  3. DORZOLAMIDE?TIMOLOL [Concomitant]
     Active Substance: DORZOLAMIDE\TIMOLOL
     Indication: GLAUCOMA
     Dosage: TWICE PER DAY
  4. PREDNISONE. [Suspect]
     Active Substance: PREDNISONE
     Indication: CYSTOID MACULAR OEDEMA
     Dosage: TOPICAL PREDNISOLONE 1% FOUR TIMES A DAY
     Route: 061
  5. PREDNISOLONE. [Suspect]
     Active Substance: PREDNISOLONE
     Indication: CYSTOID MACULAR OEDEMA
     Dosage: 30 MILLIGRAM, DAILY
     Route: 048
  6. INTERFERON [Suspect]
     Active Substance: INTERFERON
     Indication: CYSTOID MACULAR OEDEMA
     Dosage: TOPICAL IFN ?2B (1 MIU/ML) FOUR TIMES A DAY
     Route: 061

REACTIONS (3)
  - Paraesthesia [Unknown]
  - Drug ineffective [Unknown]
  - Abdominal discomfort [Unknown]
